FAERS Safety Report 15010801 (Version 1)
Quarter: 2018Q2

REPORT INFORMATION
  Report Type: Spontaneous
  Country: US (occurrence: US)
  Receive Date: 20180522
  Receipt Date: 20180522
  Transmission Date: 20180711
  Serious: Yes (Hospitalization)
  Sender: FDA-Public Use
  Company Number: None

PATIENT
  Age: 56 Year
  Sex: Female
  Weight: 54.43 kg

DRUGS (5)
  1. VITAMIN B12 [Concomitant]
     Active Substance: CYANOCOBALAMIN
  2. PARAGARD T 380A [Suspect]
     Active Substance: COPPER
     Route: 067
     Dates: start: 20140106, end: 20180416
  3. ACYCLOVIR. [Concomitant]
     Active Substance: ACYCLOVIR
  4. MULTI VITAMIN [Concomitant]
     Active Substance: VITAMINS
  5. BLACK COHOSH [Concomitant]
     Active Substance: BLACK COHOSH

REACTIONS (4)
  - Device breakage [None]
  - Hysterectomy [None]
  - Embedded device [None]
  - Complication of device removal [None]

NARRATIVE: CASE EVENT DATE: 20180330
